FAERS Safety Report 6183263-4 (Version None)
Quarter: 2009Q2

REPORT INFORMATION
  Report Type: 
  Country: None (occurrence: None)
  Receive Date: 20090507
  Receipt Date: 20090429
  Transmission Date: 20091009
  Serious: Yes (Hospitalization)
  Sender: FDA-Public Use
  Company Number: IT-AMGEN-QUU342907

PATIENT
  Sex: Female
  Weight: 56 kg

DRUGS (5)
  1. ARANESP [Suspect]
     Indication: DRUG USE FOR UNKNOWN INDICATION
     Route: 058
     Dates: start: 20090201, end: 20090330
  2. PROGRAF [Concomitant]
  3. CELLCEPT [Concomitant]
     Dates: start: 20090401, end: 20090401
  4. DELTACORTENE [Concomitant]
  5. UNSPECIFIED MEDICATION [Concomitant]

REACTIONS (1)
  - APLASIA PURE RED CELL [None]
